FAERS Safety Report 18394055 (Version 1)
Quarter: 2020Q4

REPORT INFORMATION
  Report Type: Report from Study
  Country: None (occurrence: IT)
  Receive Date: 20201016
  Receipt Date: 20201016
  Transmission Date: 20210114
  Serious: Yes (Hospitalization)
  Sender: FDA-Public Use
  Company Number: IT-ABBVIE-20K-083-3608740-00

PATIENT
  Age: 68 Year
  Sex: Male

DRUGS (2)
  1. DUODOPA [Suspect]
     Active Substance: CARBIDOPA\LEVODOPA
  2. DUODOPA [Suspect]
     Active Substance: CARBIDOPA\LEVODOPA
     Indication: PARKINSON^S DISEASE
     Dosage: TOTAL DAILY DOSE (MG): 1098; PUMP SETTING: MD: 6+3; CR: 3,3 (13H); ED: 3
     Route: 050
     Dates: start: 20200701

REACTIONS (1)
  - Hemiparesis [Unknown]

NARRATIVE: CASE EVENT DATE: 202008
